FAERS Safety Report 8255333-8 (Version None)
Quarter: 2012Q2

REPORT INFORMATION
  Report Type: 
  Country: None (occurrence: None)
  Receive Date: 20120403
  Receipt Date: 20120328
  Transmission Date: 20120825
  Serious: Yes (Hospitalization, Other)
  Sender: FDA-Public Use
  Company Number: US-JNJFOC-20120302090

PATIENT
  Sex: Male

DRUGS (17)
  1. MULTI-VITAMINS [Concomitant]
  2. LUTEIN [Concomitant]
     Route: 048
  3. XARELTO [Suspect]
     Indication: THROMBOSIS PROPHYLAXIS
     Route: 048
     Dates: start: 20120207
  4. ASCORBIC ACID [Concomitant]
     Route: 048
  5. FLOMAX [Concomitant]
     Route: 048
  6. XARELTO [Suspect]
     Indication: KNEE ARTHROPLASTY
     Route: 048
     Dates: start: 20120207
  7. FISH OIL [Concomitant]
     Route: 048
  8. FERROUS SULFATE TAB [Concomitant]
     Route: 048
  9. NIFEREX (IRON POLYSACCHARIDE) [Concomitant]
     Route: 048
  10. LISINOPRIL [Concomitant]
  11. METFORMIN HCL [Concomitant]
     Route: 048
  12. XENADERM [Concomitant]
  13. NYSTATIN [Concomitant]
  14. OXYCODONE HCL [Concomitant]
     Indication: BREAKTHROUGH PAIN
     Route: 048
  15. NYSTATIN SWISH AND SWALLOW [Concomitant]
  16. OXYCONTIN [Concomitant]
     Route: 048
  17. LASIX [Concomitant]
     Route: 048

REACTIONS (6)
  - HAEMORRHAGIC ANAEMIA [None]
  - GASTRIC ULCER [None]
  - HAEMATEMESIS [None]
  - WOUND DEHISCENCE [None]
  - HYPOVOLAEMIC SHOCK [None]
  - HYPOTENSION [None]
